FAERS Safety Report 11768916 (Version 1)
Quarter: 2015Q4

REPORT INFORMATION
  Report Type: Spontaneous
  Country: US (occurrence: US)
  Receive Date: 20151123
  Receipt Date: 20151123
  Transmission Date: 20160304
  Serious: Yes (Other)
  Sender: FDA-Public Use
  Company Number: US-BAYER-2015-466601

PATIENT
  Age: 65 Year
  Sex: Female
  Weight: 49.89 kg

DRUGS (1)
  1. ALEVE [Suspect]
     Active Substance: NAPROXEN SODIUM
     Indication: ARTHRITIS
     Dosage: 1 U, TID
     Route: 048
     Dates: start: 201506

REACTIONS (3)
  - Wrong technique in product usage process [Unknown]
  - Choking [Unknown]
  - Product use issue [None]

NARRATIVE: CASE EVENT DATE: 201506
